FAERS Safety Report 5890378-4 (Version None)
Quarter: 2008Q3

REPORT INFORMATION
  Report Type: 
  Country: None (occurrence: None)
  Receive Date: 20080918
  Receipt Date: 20080904
  Transmission Date: 20090109
  Serious: Yes (Hospitalization)
  Sender: FDA-Public Use
  Company Number: 238441J08USA

PATIENT
  Age: 69 Year
  Sex: Male

DRUGS (1)
  1. REBIF [Suspect]
     Indication: MULTIPLE SCLEROSIS
     Dosage: 44 MCG, 3 IN 1 WEEKS, SUBCUTANEOUS
     Route: 058
     Dates: start: 20041126

REACTIONS (7)
  - BURNS SECOND DEGREE [None]
  - DYSPHAGIA [None]
  - FAECAL INCONTINENCE [None]
  - FALL [None]
  - HALLUCINATION [None]
  - MOVEMENT DISORDER [None]
  - URINARY INCONTINENCE [None]
